FAERS Safety Report 9992750 (Version 2)
Quarter: 2014Q1

REPORT INFORMATION
  Report Type: Report from Study
  Country: US (occurrence: US)
  Receive Date: 20140310
  Receipt Date: 20140310
  Transmission Date: 20141002
  Serious: Yes (Other)
  Sender: FDA-Public Use
  Company Number: US-ABBVIE-13P-163-1076556-00

PATIENT
  Age: 22 Year
  Sex: Female
  Weight: 55.39 kg

DRUGS (5)
  1. LUPRON DEPOT [Suspect]
     Indication: ENDOMETRIOSIS
     Dates: start: 200808, end: 200904
  2. LUPRON DEPOT [Suspect]
     Route: 030
     Dates: start: 20130321
  3. NORETHINDRONE ACETATE [Concomitant]
     Indication: PRODUCT USED FOR UNKNOWN INDICATION
     Dosage: DAILY
     Route: 048
     Dates: start: 200808
  4. NORETHINDRONE ACETATE [Concomitant]
     Dosage: DAILY
     Route: 048
     Dates: start: 20130321
  5. CELEXA [Concomitant]
     Indication: PRODUCT USED FOR UNKNOWN INDICATION
     Route: 048
     Dates: start: 20130610

REACTIONS (11)
  - Endometriosis [Unknown]
  - Endometriosis [Unknown]
  - Endometriosis [Unknown]
  - Endometriosis [Unknown]
  - Nausea [Not Recovered/Not Resolved]
  - Menstruation irregular [Unknown]
  - Abdominal pain [Not Recovered/Not Resolved]
  - Menstrual disorder [Not Recovered/Not Resolved]
  - Headache [Unknown]
  - Menorrhagia [Unknown]
  - Pain [Unknown]
